FAERS Safety Report 17144028 (Version 2)
Quarter: 2020Q1

REPORT INFORMATION
  Report Type: Report from Study
  Country: US (occurrence: US)
  Receive Date: 20191211
  Receipt Date: 20200205
  Transmission Date: 20200409
  Serious: Yes (Hospitalization)
  Sender: FDA-Public Use
  Company Number: NVSC2019US009762

PATIENT
  Age: 18 Year
  Sex: Male
  Weight: 58.3 kg

DRUGS (63)
  1. ZYVOX [Concomitant]
     Active Substance: LINEZOLID
     Indication: RALES
     Dosage: 400 MG, BID
     Route: 048
     Dates: start: 20190122, end: 20190205
  2. ZYVOX [Concomitant]
     Active Substance: LINEZOLID
     Dosage: 400 MG, BID
     Route: 048
     Dates: start: 20190520, end: 20190603
  3. CIPROFLOXACIN. [Concomitant]
     Active Substance: CIPROFLOXACIN
     Indication: COUGH
     Dosage: 750 MG, BID
     Route: 048
     Dates: start: 20181112, end: 20181126
  4. TOBRAMYCIN. [Concomitant]
     Active Substance: TOBRAMYCIN
     Dosage: 520 MG, QD
     Route: 042
     Dates: start: 20180522, end: 20180524
  5. LINEZOLID. [Concomitant]
     Active Substance: LINEZOLID
     Indication: INFECTIVE PULMONARY EXACERBATION OF CYSTIC FIBROSIS
     Dosage: 600 UNK
     Route: 048
     Dates: start: 20180829, end: 20180912
  6. LIDOCAINE HYDROCHLORIDE W/PRILOCAINE [Concomitant]
     Indication: PAIN
     Dosage: 1 APPLICATION ONCE
     Route: 061
     Dates: start: 20180524, end: 20190524
  7. MEROPENEM. [Concomitant]
     Active Substance: MEROPENEM
     Dosage: 2000 MG, Q8H
     Route: 042
     Dates: start: 20190328, end: 20190409
  8. LINEZOLID. [Concomitant]
     Active Substance: LINEZOLID
     Dosage: 600 MG, BID
     Route: 048
     Dates: start: 20181112, end: 20181126
  9. VANCOMYCIN [Concomitant]
     Active Substance: VANCOMYCIN
     Dosage: 1000 MG, Q8H
     Route: 042
     Dates: start: 20180521, end: 20180524
  10. TRIAMCINOLONE ACETONIDE. [Concomitant]
     Active Substance: TRIAMCINOLONE ACETONIDE
     Indication: RASH
     Dosage: 0.5 %, PRN (1 APPLICATION)
     Route: 061
     Dates: start: 20180517, end: 20180524
  11. BACTRIM DS [Concomitant]
     Active Substance: SULFAMETHOXAZOLE\TRIMETHOPRIM
     Indication: INFECTIVE PULMONARY EXACERBATION OF CYSTIC FIBROSIS
     Dosage: UNK, TID (800-160 MG)
     Route: 048
     Dates: start: 20180423, end: 20180509
  12. CEFEPIME [Concomitant]
     Active Substance: CEFEPIME HYDROCHLORIDE
     Dosage: 200 MG, Q8H
     Route: 065
     Dates: start: 20191009
  13. DELAFLOXACIN MEGLUMINE [Concomitant]
     Active Substance: DELAFLOXACIN MEGLUMINE
     Dosage: 450 MG, BID
     Route: 048
     Dates: start: 20190711, end: 20190721
  14. ZYVOX [Concomitant]
     Active Substance: LINEZOLID
     Indication: COUGH
     Dosage: 600 MG, BID
     Route: 048
     Dates: start: 20190227, end: 20190313
  15. ZYVOX [Concomitant]
     Active Substance: LINEZOLID
     Dosage: 600 MG, BID
     Route: 048
     Dates: start: 20190321, end: 20190328
  16. LEVAQUIN [Concomitant]
     Active Substance: LEVOFLOXACIN
     Dosage: 750 MG, QD FOR 14 DAYS
     Route: 048
     Dates: start: 20190912, end: 20190924
  17. CIPROFLOXACIN. [Concomitant]
     Active Substance: CIPROFLOXACIN
     Indication: INFECTIVE PULMONARY EXACERBATION OF CYSTIC FIBROSIS
     Dosage: 750 MG, BID
     Route: 048
     Dates: start: 20180829, end: 20180912
  18. TOBRAMYCIN. [Concomitant]
     Active Substance: TOBRAMYCIN
     Indication: INFECTIVE PULMONARY EXACERBATION OF CYSTIC FIBROSIS
     Dosage: 560 MG, QD
     Route: 042
     Dates: start: 20180222, end: 20180224
  19. VANCOMYCIN [Concomitant]
     Active Substance: VANCOMYCIN
     Dosage: 500 MG, Q8H
     Route: 042
     Dates: start: 20180524, end: 20190607
  20. NARCAN [Concomitant]
     Active Substance: NALOXONE HYDROCHLORIDE
     Indication: PAIN
     Dosage: 1 MG, PRN
     Route: 042
     Dates: start: 20180222, end: 20180227
  21. AZITHROMYCIN ANHYDROUS. [Concomitant]
     Active Substance: AZITHROMYCIN ANHYDROUS
     Indication: CYSTIC FIBROSIS
     Dosage: 500 MG (M,W.F)
     Route: 048
     Dates: start: 20180307
  22. SODIUM CHLORIDE. [Concomitant]
     Active Substance: SODIUM CHLORIDE
     Indication: ANTIPLATELET THERAPY
     Dosage: 4 ML, BID
     Route: 055
     Dates: start: 20140207
  23. SODIUM CHLORIDE. [Concomitant]
     Active Substance: SODIUM CHLORIDE
     Indication: CHRONIC SINUSITIS
     Dosage: 0.9 % (CONTINUOUS)
     Route: 042
     Dates: start: 20180517
  24. KENALOG [Concomitant]
     Active Substance: TRIAMCINOLONE ACETONIDE
     Indication: IMPAIRED HEALING
     Dosage: UNK, BID (1 APPLICATION)
     Route: 061
     Dates: start: 20130313
  25. CEFEPIME [Concomitant]
     Active Substance: CEFEPIME HYDROCHLORIDE
     Indication: INFECTIVE PULMONARY EXACERBATION OF CYSTIC FIBROSIS
     Dosage: 2000 MG, Q6H
     Route: 042
     Dates: start: 20180222, end: 20180227
  26. LEVAQUIN [Concomitant]
     Active Substance: LEVOFLOXACIN
     Indication: INFECTIVE PULMONARY EXACERBATION OF CYSTIC FIBROSIS
     Dosage: 750 MG, QD
     Route: 048
     Dates: start: 20180509, end: 20180524
  27. MEROPENEM. [Concomitant]
     Active Substance: MEROPENEM
     Indication: INFECTIVE PULMONARY EXACERBATION OF CYSTIC FIBROSIS
     Dosage: 2000 MG, Q8H
     Route: 042
     Dates: start: 20180517, end: 20180607
  28. TOBRAMYCIN. [Concomitant]
     Active Substance: TOBRAMYCIN
     Dosage: 460 MG, QD
     Route: 042
     Dates: start: 20180524, end: 20180524
  29. DIPHENHYDRAMINE. [Concomitant]
     Active Substance: DIPHENHYDRAMINE
     Indication: PREMEDICATION
     Dosage: 25 MG, Q8H
     Route: 048
     Dates: start: 20180517, end: 20180524
  30. ZYVOX [Concomitant]
     Active Substance: LINEZOLID
     Dosage: 600 MG, BID
     Route: 048
     Dates: start: 20190627, end: 20190711
  31. LEVAQUIN [Concomitant]
     Active Substance: LEVOFLOXACIN
     Indication: COUGH
     Dosage: 500 MG, QD
     Route: 048
     Dates: start: 20180216, end: 20180222
  32. TOBRAMYCIN. [Concomitant]
     Active Substance: TOBRAMYCIN
     Dosage: 415 MG, QD
     Route: 042
     Dates: start: 20180517, end: 20180519
  33. TOBRAMYCIN. [Concomitant]
     Active Substance: TOBRAMYCIN
     Dosage: 650 MG, QD
     Route: 042
     Dates: start: 20180519, end: 20180522
  34. HEPARIN [Concomitant]
     Active Substance: HEPARIN SODIUM
     Indication: PROPHYLAXIS
     Dosage: 5 ML, QMO
     Route: 042
     Dates: start: 20190131
  35. VANCOMYCIN [Concomitant]
     Active Substance: VANCOMYCIN
     Dosage: 1250 MG, Q8H
     Route: 042
     Dates: start: 20180520, end: 20180521
  36. ALBUTEROL. [Concomitant]
     Active Substance: ALBUTEROL
     Indication: PRODUCT USED FOR UNKNOWN INDICATION
     Dosage: 3 ML, BID
     Route: 065
     Dates: start: 20010823
  37. CREON [Concomitant]
     Active Substance: PANCRELIPASE AMYLASE\PANCRELIPASE LIPASE\PANCRELIPASE PROTEASE
     Indication: PANCREATIC FAILURE
     Dosage: 6 DF AT MEALS
     Route: 048
     Dates: start: 20170823
  38. TOBRAMYCIN. [Concomitant]
     Active Substance: TOBRAMYCIN
     Dosage: 460 MG, QD
     Route: 042
     Dates: start: 20190328, end: 20190409
  39. LACTOBACILLUS [Concomitant]
     Active Substance: LACTOBACILLUS ACIDOPHILUS
     Indication: ANTIBIOTIC THERAPY
     Dosage: 1 DF, QD
     Route: 048
     Dates: start: 20180522, end: 20180524
  40. LACTOBACILLUS [Concomitant]
     Active Substance: LACTOBACILLUS ACIDOPHILUS
     Indication: PROBIOTIC THERAPY
     Dosage: 1 DF, QD
     Route: 048
     Dates: start: 20180531
  41. DOXYCYCLINE. [Concomitant]
     Active Substance: DOXYCYCLINE
     Indication: INFECTIVE PULMONARY EXACERBATION OF CYSTIC FIBROSIS
     Dosage: 100 MG, BID
     Route: 048
     Dates: start: 20180809, end: 20180823
  42. ACETAMINOPHEN. [Concomitant]
     Active Substance: ACETAMINOPHEN
     Indication: PYREXIA
     Dosage: 500 MG, PRN
     Route: 048
     Dates: start: 20180517, end: 20180524
  43. ACETAMINOPHEN. [Concomitant]
     Active Substance: ACETAMINOPHEN
     Indication: PAIN
  44. LIDOCAINE. [Concomitant]
     Active Substance: LIDOCAINE
     Indication: LOCAL ANAESTHESIA
     Dosage: 2.5 %, PRN
     Route: 061
     Dates: start: 20180222, end: 20180227
  45. TOBRAMYCIN. [Suspect]
     Active Substance: TOBRAMYCIN
     Indication: INFECTIVE PULMONARY EXACERBATION OF CYSTIC FIBROSIS
     Dosage: 112 MG, BID
     Route: 055
     Dates: start: 20150729
  46. TOBRAMYCIN. [Concomitant]
     Active Substance: TOBRAMYCIN
     Dosage: 415 MG, QD
     Route: 042
     Dates: start: 20180224, end: 20180227
  47. MULTIVITAMINUM [Concomitant]
     Active Substance: VITAMINS
     Indication: PANCREATIC FAILURE
     Dosage: 2 DF, QD
     Route: 048
     Dates: start: 20190410
  48. HEPARIN [Concomitant]
     Active Substance: HEPARIN SODIUM
     Indication: ANTIPLATELET THERAPY
     Dosage: 50 U, QD AND PRN
     Route: 042
     Dates: start: 20180222, end: 20180227
  49. VANCOMYCIN [Concomitant]
     Active Substance: VANCOMYCIN
     Indication: INFECTIVE PULMONARY EXACERBATION OF CYSTIC FIBROSIS
     Dosage: 1500 MG, Q8H
     Route: 042
     Dates: start: 20180517, end: 20180520
  50. AZITHROMYCIN ANHYDROUS. [Concomitant]
     Active Substance: AZITHROMYCIN ANHYDROUS
     Indication: INFECTIVE PULMONARY EXACERBATION OF CYSTIC FIBROSIS
     Dosage: 500 MG (M,W.F)
     Route: 048
     Dates: start: 20180228, end: 20180304
  51. PREDNISONE. [Concomitant]
     Active Substance: PREDNISONE
     Indication: INFECTIVE PULMONARY EXACERBATION OF CYSTIC FIBROSIS
     Dosage: 20 MG, QD
     Route: 048
     Dates: start: 20180509, end: 20180514
  52. PRILOCAINE [Concomitant]
     Active Substance: PRILOCAINE
     Indication: LOCAL ANAESTHESIA
     Dosage: 2.5 %, PRN
     Route: 061
     Dates: start: 20180222, end: 20180227
  53. PEDIASURE [Concomitant]
     Active Substance: VITAMINS
     Indication: PANCREATIC FAILURE
     Dosage: 4 CANS, OVERNIGHT, GTUBE
     Route: 065
     Dates: start: 20140320
  54. TRIMETHOPRIM. [Concomitant]
     Active Substance: TRIMETHOPRIM
     Indication: INFECTIVE PULMONARY EXACERBATION OF CYSTIC FIBROSIS
     Dosage: 160 MG, TID
     Route: 048
     Dates: start: 20180222, end: 20180307
  55. CREON [Concomitant]
     Active Substance: PANCRELIPASE AMYLASE\PANCRELIPASE LIPASE\PANCRELIPASE PROTEASE
     Dosage: 4 DF, AT SNACK
     Route: 048
     Dates: start: 20170823
  56. TOBRAMYCIN. [Suspect]
     Active Substance: TOBRAMYCIN
     Dosage: 112 MG
     Route: 065
     Dates: start: 20190925
  57. DELAFLOXACIN MEGLUMINE [Concomitant]
     Active Substance: DELAFLOXACIN MEGLUMINE
     Indication: COUGH
     Dosage: 450 MG, BID
     Route: 048
     Dates: start: 20181023, end: 20181101
  58. CIPROFLOXACIN. [Concomitant]
     Active Substance: CIPROFLOXACIN
     Dosage: 750 MG, BID FOR 10DAYS
     Route: 048
     Dates: start: 20190924
  59. AVELOX [Concomitant]
     Active Substance: MOXIFLOXACIN HYDROCHLORIDE
     Indication: COUGH
     Dosage: 400 MG, QD
     Route: 048
     Dates: start: 20190520, end: 20190603
  60. HEPARIN FLUSH [Concomitant]
     Active Substance: HEPARIN SODIUM
     Indication: CENTRAL VENOUS CATHETERISATION
     Dosage: 30 U, PRN
     Route: 042
     Dates: start: 20180517, end: 20180524
  61. SODIUM CHLORIDE. [Concomitant]
     Active Substance: SODIUM CHLORIDE
     Indication: ELECTROLYTE SUBSTITUTION THERAPY
     Dosage: UNK, PRN
     Route: 042
     Dates: start: 20180223, end: 20180227
  62. SULFAMETHOXAZOLE [Concomitant]
     Active Substance: SULFAMETHOXAZOLE
     Indication: INFECTIVE PULMONARY EXACERBATION OF CYSTIC FIBROSIS
     Dosage: 800 MG, TID
     Route: 048
     Dates: start: 20180222, end: 20180307
  63. PULMOZYME [Concomitant]
     Active Substance: DORNASE ALFA
     Indication: CYSTIC FIBROSIS
     Dosage: 2.5 MG, 8 DAYS
     Route: 065
     Dates: start: 20020214

REACTIONS (1)
  - Infective pulmonary exacerbation of cystic fibrosis [Recovered/Resolved]

NARRATIVE: CASE EVENT DATE: 20190907
